FAERS Safety Report 9413820 (Version 2)
Quarter: 2013Q3

REPORT INFORMATION
  Report Type: Spontaneous
  Country: FR (occurrence: FR)
  Receive Date: 20130723
  Receipt Date: 20130823
  Transmission Date: 20140515
  Serious: Yes (Hospitalization)
  Sender: FDA-Public Use
  Company Number: FR-SANOFI-AVENTIS-2013SA071413

PATIENT
  Age: 64 Year
  Sex: Male

DRUGS (6)
  1. ARAVA [Suspect]
     Indication: RHEUMATOID ARTHRITIS
     Route: 048
     Dates: start: 200309
  2. CORTANCYL [Suspect]
     Indication: RHEUMATOID ARTHRITIS
     Route: 048
     Dates: start: 201304
  3. SKENAN [Concomitant]
  4. ACTISKENAN [Concomitant]
  5. EUPANTOL [Concomitant]
  6. INSULATARD [Concomitant]

REACTIONS (1)
  - Osteitis [Recovered/Resolved]
